FAERS Safety Report 10233864 (Version 4)
Quarter: 2014Q3

REPORT INFORMATION
  Report Type: Report from Study
  Country: US (occurrence: US)
  Receive Date: 20140612
  Receipt Date: 20140819
  Transmission Date: 20150326
  Serious: Yes (Other)
  Sender: FDA-Public Use
  Company Number: US-SA-2013SA136260

PATIENT
  Age: 50 Year
  Sex: Male
  Weight: 76.5 kg

DRUGS (8)
  1. ZOLOFT [Concomitant]
     Active Substance: SERTRALINE HYDROCHLORIDE
  2. COLLAGEN [Concomitant]
     Active Substance: COLLAGEN
  3. AUBAGIO [Suspect]
     Active Substance: TERIFLUNOMIDE
     Indication: MULTIPLE SCLEROSIS
     Route: 048
     Dates: start: 20131109
  4. AVONEX [Concomitant]
     Active Substance: INTERFERON BETA-1A
     Route: 065
     Dates: start: 200801, end: 201311
  5. AUBAGIO [Suspect]
     Active Substance: TERIFLUNOMIDE
     Indication: MULTIPLE SCLEROSIS
     Route: 048
     Dates: start: 20140304
  6. AUBAGIO [Suspect]
     Active Substance: TERIFLUNOMIDE
     Indication: MULTIPLE SCLEROSIS
     Route: 048
  7. VITAMIN B12 [Concomitant]
     Active Substance: CYANOCOBALAMIN
     Dosage: DOSE: 1000 MCG/5 L
  8. BENADRYL [Concomitant]
     Active Substance: DIPHENHYDRAMINE HYDROCHLORIDE
     Indication: HYPERSENSITIVITY

REACTIONS (10)
  - Flatulence [Unknown]
  - Faeces soft [Unknown]
  - Constipation [Unknown]
  - Pain in extremity [Unknown]
  - Multiple sclerosis relapse [Recovering/Resolving]
  - Abdominal pain upper [Unknown]
  - Back pain [Unknown]
  - Pruritus [Unknown]
  - Depression [Not Recovered/Not Resolved]
  - Drug dose omission [Unknown]
